FAERS Safety Report 6879735-7 (Version None)
Quarter: 2010Q2

REPORT INFORMATION
  Report Type: 
  Country: None (occurrence: None)
  Receive Date: 20100625
  Receipt Date: 20100310
  Transmission Date: 20101027
  Serious: Yes (Hospitalization)
  Sender: FDA-Public Use
  Company Number: 2010031316

PATIENT
  Age: 65 Year
  Sex: Female

DRUGS (1)
  1. ESTRING [Suspect]
     Dosage: VAGINAL
     Route: 067
     Dates: start: 20100101, end: 20100101

REACTIONS (3)
  - URINARY TRACT INFECTION [None]
  - VULVOVAGINAL BURNING SENSATION [None]
  - VULVOVAGINAL DISCOMFORT [None]
